FAERS Safety Report 4352989-7 (Version None)
Quarter: 2004Q2

REPORT INFORMATION
  Report Type: 
  Country: None (occurrence: None)
  Receive Date: 20040429
  Receipt Date: 20040416
  Transmission Date: 20050107
  Serious: Yes (Death, Other)
  Sender: FDA-Public Use
  Company Number: 2003121438

PATIENT
  Age: 56 Year
  Sex: Male

DRUGS (12)
  1. ALFADIL (DOXAZOSIN) [Suspect]
     Indication: HYPERTENSION
     Dosage: 4 MG (DAILY), ORAL
     Route: 048
     Dates: start: 20000101
  2. METOPROLOL TARTRATE [Suspect]
     Indication: HYPERTENSION
     Dosage: 400 MG
  3. FELODIPINE [Suspect]
     Indication: HYPERTENSION
     Dosage: 20 MG
  4. LOSARTAN POTASSIUM [Suspect]
     Indication: HYPERTENSION
     Dosage: 50 MG
  5. ACETYLSALICYLIC ACID SRT [Suspect]
     Indication: ILL-DEFINED DISORDER
  6. DIXYRAZINE (DIXYRAZINE) [Suspect]
     Indication: ILL-DEFINED DISORDER
     Dosage: 20 MG
  7. ATENOLOL (ATENIOLOL) [Concomitant]
  8. ACETAMINOPHEN [Concomitant]
  9. DEXTROPROPOXYPHENE NAPSILATE (DEXTROPROPOXYPHENE NAPSILATE) [Concomitant]
  10. SIMVASTATIN [Concomitant]
  11. PROPIOMAZINE MALEATE (PROPIOMAZINE MALEATE) [Concomitant]
  12. FERROUS SULFATE TAB [Concomitant]

REACTIONS (2)
  - DRY MOUTH [None]
  - TOOTH LOSS [None]
